FAERS Safety Report 18840767 (Version 2)
Quarter: 2021Q1

REPORT INFORMATION
  Report Type: Spontaneous
  Country: BR (occurrence: BR)
  Receive Date: 20210203
  Receipt Date: 20210304
  Transmission Date: 20210419
  Serious: Yes (Hospitalization, Other)
  Sender: FDA-Public Use
  Company Number: BR-PFIZER INC-2021081110

PATIENT

DRUGS (2)
  1. METHOTREXATE SODIUM. [Suspect]
     Active Substance: METHOTREXATE SODIUM
  2. ETANERCEPT [Suspect]
     Active Substance: ETANERCEPT

REACTIONS (4)
  - Gastroenteritis [Unknown]
  - Sepsis [Unknown]
  - Hepatitis [Unknown]
  - Diarrhoea infectious [Unknown]
